FAERS Safety Report 4889698-1 (Version None)
Quarter: 2006Q1

REPORT INFORMATION
  Report Type: 
  Country: None (occurrence: None)
  Receive Date: 20060124
  Receipt Date: 20050516
  Transmission Date: 20060701
  Serious: No
  Sender: FDA-Public Use
  Company Number: US-GLAXOSMITHKLINE-A0559356A

PATIENT
  Age: 43 Year
  Sex: Male

DRUGS (6)
  1. LEXIVA [Suspect]
     Indication: HIV INFECTION
     Dosage: 1400MG TWICE PER DAY
     Route: 048
     Dates: end: 20050501
  2. WELLBUTRIN [Suspect]
     Indication: DRUG USE FOR UNKNOWN INDICATION
     Route: 048
  3. ZIAGEN [Suspect]
     Indication: HIV INFECTION
     Route: 065
     Dates: end: 20050501
  4. ZERIT [Suspect]
     Indication: HIV INFECTION
     Route: 065
     Dates: end: 20050501
  5. EPIVIR [Suspect]
     Indication: HIV INFECTION
     Route: 065
     Dates: end: 20050501
  6. LORAZEPAM [Concomitant]
     Route: 065

REACTIONS (4)
  - CONFUSIONAL STATE [None]
  - FATIGUE [None]
  - MEMORY IMPAIRMENT [None]
  - TREMOR [None]
